FAERS Safety Report 18266886 (Version 1)
Quarter: 2020Q3

REPORT INFORMATION
  Report Type: Spontaneous
  Country: US (occurrence: US)
  Receive Date: 20200914
  Receipt Date: 20200914
  Transmission Date: 20201103
  Serious: No
  Sender: FDA-Public Use
  Company Number: None

PATIENT
  Age: 46 Year
  Sex: Female

DRUGS (4)
  1. BUPRENORPHINE PATCH [Suspect]
     Active Substance: BUPRENORPHINE
     Indication: PAIN
     Dosage: ?          OTHER FREQUENCY:WEEKLY;?
     Route: 062
     Dates: start: 20200901
  2. DIAZEPAM 5 MG TABS [Concomitant]
  3. PREGABALIN 200 MG CAPS [Concomitant]
  4. SUMATRIPTAN 100 MG [Concomitant]
     Active Substance: SUMATRIPTAN

REACTIONS (3)
  - Device adhesion issue [None]
  - Application site rash [None]
  - Application site irritation [None]

NARRATIVE: CASE EVENT DATE: 20200908
